FAERS Safety Report 6997577-9 (Version None)
Quarter: 2010Q3

REPORT INFORMATION
  Report Type: 
  Country: None (occurrence: None)
  Receive Date: 20100918
  Receipt Date: 20091027
  Transmission Date: 20110219
  Serious: No
  Sender: FDA-Public Use
  Company Number: US-WYE-H11915609

PATIENT
  Sex: Female
  Weight: 49.94 kg

DRUGS (2)
  1. PREMPRO [Suspect]
     Indication: HORMONE REPLACEMENT THERAPY
     Dosage: UNKNOWN
     Route: 048
     Dates: start: 20081001
  2. LEXAPRO [Concomitant]

REACTIONS (3)
  - BREAST ENLARGEMENT [None]
  - WEIGHT INCREASED [None]
  - WEIGHT LOSS POOR [None]
